FAERS Safety Report 14154421 (Version 1)
Quarter: 2017Q4

REPORT INFORMATION
  Report Type: Spontaneous
  Country: US (occurrence: US)
  Receive Date: 20171102
  Receipt Date: 20171102
  Transmission Date: 20180321
  Serious: No
  Sender: FDA-Public Use
  Company Number: US-PERRIGO-17US025977

PATIENT
  Sex: Male

DRUGS (3)
  1. BUDESONIDE. [Suspect]
     Active Substance: BUDESONIDE
     Indication: COELIAC DISEASE
     Dosage: 3 MG, QD
     Route: 048
     Dates: start: 2002, end: 2007
  2. BUDESONIDE. [Suspect]
     Active Substance: BUDESONIDE
     Dosage: 6 MG, QD
     Route: 048
     Dates: start: 2007
  3. IMODIUM [Concomitant]
     Active Substance: LOPERAMIDE HYDROCHLORIDE
     Indication: PRODUCT USED FOR UNKNOWN INDICATION
     Dosage: UNK
     Route: 065

REACTIONS (2)
  - Therapeutic response unexpected [Unknown]
  - Off label use [Unknown]

NARRATIVE: CASE EVENT DATE: 2002
